FAERS Safety Report 9731164 (Version 3)
Quarter: 2014Q2

REPORT INFORMATION
  Report Type: Report from Study
  Country: JP (occurrence: JP)
  Receive Date: 20131203
  Receipt Date: 20140502
  Transmission Date: 20141212
  Serious: Yes (Other)
  Sender: FDA-Public Use
  Company Number: JP-009507513-2011SP050938

PATIENT
  Age: 48 Year
  Sex: Male
  Weight: 43 kg

DRUGS (6)
  1. REBETOL [Suspect]
     Indication: CHRONIC HEPATITIS C
     Dosage: 200 MG, QAM
     Route: 048
     Dates: start: 20100615, end: 20111012
  2. REBETOL [Suspect]
     Dosage: 400 MG, QPM
     Route: 048
     Dates: start: 20100615, end: 20111012
  3. FERON [Suspect]
     Indication: CHRONIC HEPATITIS C
     Dosage: 3 MILLION IU, BID
     Route: 041
     Dates: start: 20100615, end: 20100621
  4. FERON [Suspect]
     Dosage: 6 MILLION IU, QD
     Route: 041
     Dates: start: 20100622, end: 20100628
  5. FERON [Suspect]
     Dosage: 6 MILLION IU, Q3W
     Route: 041
     Dates: start: 20100630, end: 20111012
  6. URSO [Concomitant]
     Indication: CHRONIC HEPATITIS C
     Dosage: 300 MG, QD, DOSAGE TEXT: DIVIDED DOSE FREQUENCY UNKNOWN
     Route: 048
     Dates: start: 20100226

REACTIONS (4)
  - Neutrophil count decreased [Recovered/Resolved]
  - Pyrexia [Recovered/Resolved]
  - Proteinuria [Recovering/Resolving]
  - Pyrexia [Recovered/Resolved]
